FAERS Safety Report 16200945 (Version 1)
Quarter: 2019Q2

REPORT INFORMATION
  Report Type: Spontaneous
  Country: DE (occurrence: DE)
  Receive Date: 20190416
  Receipt Date: 20190416
  Transmission Date: 20190711
  Serious: Yes (Hospitalization, Other)
  Sender: FDA-Public Use
  Company Number: DE-AUROBINDO-AUR-APL-2019-019680

PATIENT

DRUGS (3)
  1. FERRO-SANOL DUODENAL [Interacting]
     Active Substance: FERROUS GLYCINE SULFATE
     Indication: PRODUCT USED FOR UNKNOWN INDICATION
     Dosage: UNK
     Route: 065
  2. AMLODIPINE [Suspect]
     Active Substance: AMLODIPINE BESYLATE
     Indication: HYPERTENSION
     Dosage: 10 MILLIGRAM, DAILY (1-0-0)
     Route: 048
     Dates: start: 20180202, end: 20180915
  3. RAMIPRIL. [Concomitant]
     Active Substance: RAMIPRIL
     Indication: HYPERTENSION
     Dosage: 5 MILLIGRAM, DAILY (0-0-1)
     Route: 065

REACTIONS (10)
  - Vomiting [Recovered/Resolved]
  - Helplessness [Recovering/Resolving]
  - Vertigo [Recovered/Resolved]
  - Movement disorder [Recovering/Resolving]
  - Food interaction [Unknown]
  - Drug interaction [Unknown]
  - Adverse reaction [Recovered/Resolved]
  - Meniere^s disease [Recovered/Resolved]
  - Retching [Recovering/Resolving]
  - Balance disorder [Recovering/Resolving]

NARRATIVE: CASE EVENT DATE: 20180402
